FAERS Safety Report 7511802-7 (Version None)
Quarter: 2011Q2

REPORT INFORMATION
  Report Type: 
  Country: None (occurrence: None)
  Receive Date: 20110531
  Receipt Date: 20110510
  Transmission Date: 20111010
  Serious: No
  Sender: FDA-Public Use
  Company Number: US-B.I. PHARMACEUTICALS,INC./RIDGEFIELD-2011-BP-07951BP

PATIENT
  Sex: Female

DRUGS (8)
  1. ZOCOR [Concomitant]
     Indication: BLOOD CHOLESTEROL INCREASED
     Dosage: 20 MG
     Route: 048
  2. DIGOXIN [Concomitant]
     Indication: ATRIAL FIBRILLATION
     Dosage: 0.125 MG
     Route: 048
  3. ALTACE [Concomitant]
     Indication: CARDIAC DISORDER
     Dosage: 5 MG
     Route: 048
  4. BUMEX [Concomitant]
     Indication: FLUID RETENTION
     Dosage: 1 MG
     Route: 048
  5. REGLAN [Concomitant]
     Dosage: 5 MG
     Route: 048
  6. PRADAXA [Suspect]
     Indication: ATRIAL FIBRILLATION
     Dosage: 300 MG
     Route: 048
     Dates: start: 20110303
  7. SYNTHROID [Concomitant]
     Indication: HYPOTHYROIDISM
     Route: 048
  8. METOPROLOL TARTRATE [Concomitant]
     Indication: ATRIAL FIBRILLATION
     Dosage: 50 MG
     Route: 048

REACTIONS (8)
  - RECTAL HAEMORRHAGE [None]
  - EPISTAXIS [None]
  - ABDOMINAL PAIN UPPER [None]
  - THIRST [None]
  - FLUID RETENTION [None]
  - RASH [None]
  - DYSPEPSIA [None]
  - POLLAKIURIA [None]
